FAERS Safety Report 10442493 (Version 1)
Quarter: 2014Q3

REPORT INFORMATION
  Report Type: Spontaneous
  Country: US (occurrence: None)
  Receive Date: 20140908
  Receipt Date: 20140908
  Transmission Date: 20150326
  Serious: Yes (Death, Life-Threatening, Other)
  Sender: FDA-Public Use
  Company Number: 2014SCAL000068

PATIENT
  Age: 50 Year
  Sex: Female

DRUGS (3)
  1. FENOFIBRATE. [Concomitant]
     Active Substance: FENOFIBRATE
  2. METOPROLOL [Suspect]
     Active Substance: METOPROLOL
     Indication: PRODUCT USED FOR UNKNOWN INDICATION
     Route: 048
  3. BUPROPION [Concomitant]
     Active Substance: BUPROPION

REACTIONS (8)
  - Suicide attempt [None]
  - Bradycardia [None]
  - Somnolence [None]
  - Overdose [None]
  - Convulsion [None]
  - Hypotension [None]
  - Cardiac arrest [None]
  - Multi-organ failure [None]
